FAERS Safety Report 5904401-1 (Version None)
Quarter: 2008Q4

REPORT INFORMATION
  Report Type: 
  Country: None (occurrence: None)
  Receive Date: 20081001
  Receipt Date: 20080926
  Transmission Date: 20090506
  Serious: Yes (Hospitalization, Other)
  Sender: FDA-Public Use
  Company Number: FR-BRISTOL-MYERS SQUIBB COMPANY-14352876

PATIENT
  Age: 61 Year
  Sex: Female

DRUGS (7)
  1. GLUCOPHAGE [Suspect]
     Indication: DIABETES MELLITUS
     Dosage: STRENGTH 1000 MG
     Route: 048
     Dates: start: 19970101, end: 20080403
  2. AMARYL [Concomitant]
  3. KERLONE [Concomitant]
  4. BIPRETERAX [Concomitant]
  5. CORVASAL [Concomitant]
  6. INEGY [Concomitant]
  7. BETASERC [Concomitant]

REACTIONS (3)
  - BLOOD POTASSIUM INCREASED [None]
  - LACTIC ACIDOSIS [None]
  - RENAL FAILURE ACUTE [None]
